FAERS Safety Report 24341473 (Version 2)
Quarter: 2024Q4

REPORT INFORMATION
  Report Type: Spontaneous
  Country: NL (occurrence: NL)
  Receive Date: 20240920
  Receipt Date: 20241127
  Transmission Date: 20250114
  Serious: Yes (Other)
  Sender: NOVARTIS
  Company Number: NL-002147023-NVSC2024NL185177

PATIENT
  Age: 77 Year
  Sex: Male

DRUGS (1)
  1. SECUKINUMAB [Suspect]
     Active Substance: SECUKINUMAB
     Indication: Psoriasis
     Dosage: UNK
     Route: 065
     Dates: start: 20230918, end: 20240628

REACTIONS (2)
  - Pemphigoid [Unknown]
  - Blister [Unknown]

NARRATIVE: CASE EVENT DATE: 20240401
